FAERS Safety Report 24801658 (Version 1)
Quarter: 2025Q1

REPORT INFORMATION
  Report Type: Spontaneous
  Country: US (occurrence: US)
  Receive Date: 20250102
  Receipt Date: 20250102
  Transmission Date: 20250408
  Serious: No
  Sender: MERCK
  Company Number: US-009507513-2501USA000280

PATIENT
  Age: 27 Year
  Sex: Male

DRUGS (4)
  1. INVANZ [Suspect]
     Active Substance: ERTAPENEM SODIUM
     Indication: Fusobacterium infection
  2. INVANZ [Suspect]
     Active Substance: ERTAPENEM SODIUM
     Indication: Bacteraemia
  3. INVANZ [Suspect]
     Active Substance: ERTAPENEM SODIUM
     Indication: Lemierre syndrome
  4. HEPARIN [Concomitant]
     Active Substance: HEPARIN SODIUM

REACTIONS (1)
  - Product use in unapproved indication [Unknown]
